FAERS Safety Report 5591254-7 (Version None)
Quarter: 2008Q1

REPORT INFORMATION
  Report Type: 
  Country: None (occurrence: None)
  Receive Date: 20080110
  Receipt Date: 20080110
  Transmission Date: 20080703
  Serious: Yes (Other)
  Sender: FDA-Public Use
  Company Number: None

PATIENT
  Age: 56 Year
  Sex: Male
  Weight: 78.0187 kg

DRUGS (1)
  1. LEVAQUIN [Suspect]
     Indication: RESPIRATORY TRACT INFECTION
     Dosage: 750MG 1 DAILY PO
     Route: 048
     Dates: start: 20071030, end: 20071108

REACTIONS (2)
  - GAIT DISTURBANCE [None]
  - TENDON PAIN [None]
